FAERS Safety Report 11161540 (Version 1)
Quarter: 2015Q2

REPORT INFORMATION
  Report Type: Spontaneous
  Country: US (occurrence: US)
  Receive Date: 20150604
  Receipt Date: 20150604
  Transmission Date: 20150821
  Serious: No
  Sender: FDA-Public Use
  Company Number: US-SA-2014SA084962

PATIENT
  Age: 49 Year
  Sex: Female

DRUGS (6)
  1. ORAL ANTIDIABETICS [Concomitant]
     Active Substance: UNSPECIFIED INGREDIENT
  2. METFORMIN [Concomitant]
     Active Substance: METFORMIN HYDROCHLORIDE
     Indication: DIABETES MELLITUS
     Dates: start: 201212
  3. LANTUS SOLOSTAR [Suspect]
     Active Substance: INSULIN GLARGINE
     Indication: TYPE 2 DIABETES MELLITUS
     Dosage: DOSE:40 UNIT(S)
     Route: 058
     Dates: start: 20140614, end: 20140619
  4. LISINOPRIL. [Concomitant]
     Active Substance: LISINOPRIL
     Indication: BLOOD PRESSURE
     Dates: start: 201405
  5. TYLENOL [Concomitant]
     Active Substance: ACETAMINOPHEN
     Dates: start: 2013
  6. SOLOSTAR [Concomitant]
     Active Substance: DEVICE
     Dates: start: 201406

REACTIONS (4)
  - Middle insomnia [Not Recovered/Not Resolved]
  - Insomnia [Unknown]
  - Pain in extremity [Not Recovered/Not Resolved]
  - Pain [Unknown]

NARRATIVE: CASE EVENT DATE: 201406
